FAERS Safety Report 7779810-9 (Version None)
Quarter: 2011Q3

REPORT INFORMATION
  Report Type: 
  Country: None (occurrence: None)
  Receive Date: 20110927
  Receipt Date: 20110922
  Transmission Date: 20111222
  Serious: Yes (Hospitalization)
  Sender: FDA-Public Use
  Company Number: US-PFIZER INC-2011206257

PATIENT
  Sex: Female
  Weight: 121.91 kg

DRUGS (11)
  1. PAXIL [Concomitant]
     Indication: DEPRESSION
     Dosage: 40 MG, 1X/DAY
     Route: 048
     Dates: start: 20080101
  2. SYNTHROID [Concomitant]
     Indication: HYPOTHYROIDISM
     Dosage: UNK UNK, 1X/DAY
     Route: 048
     Dates: start: 20100601
  3. CARBOPLATIN [Suspect]
     Indication: BREAST CANCER
     Dosage: AUC 4
     Route: 042
     Dates: start: 20110711, end: 20110808
  4. CUMADIN [Concomitant]
     Indication: PROPHYLAXIS
     Dosage: 1 MG, 1X/DAY
     Route: 048
     Dates: start: 20110711
  5. SUNITINIB MALATE [Suspect]
     Indication: BREAST CANCER
     Dosage: 25 MG, CYCLIC
     Route: 048
     Dates: start: 20110711, end: 20110829
  6. ZOFRAN [Concomitant]
     Indication: NAUSEA
     Dosage: 8 MG, EVERY 12 HOURS
     Route: 048
     Dates: start: 20110718
  7. CIPROFLOXACIN [Concomitant]
     Indication: PROPHYLAXIS
     Dosage: 500 MG, 2X/DAY
     Route: 048
     Dates: start: 20110801
  8. PACLITAXEL [Suspect]
     Indication: BREAST CANCER
     Dosage: 60 MG/M2
     Route: 042
     Dates: start: 20110711, end: 20110822
  9. LISINOPRIL [Concomitant]
     Indication: HYPERTENSION
     Dosage: 10 MG, 1X/DAY
     Route: 048
     Dates: start: 20100601
  10. KLONOPIN [Concomitant]
     Indication: ANXIETY
     Dosage: 0.5 MG, 3X/DAY
     Route: 048
     Dates: start: 20100601
  11. LORTAB [Concomitant]
     Indication: PAIN IN EXTREMITY
     Dosage: 5 MG, EVERY 6 HOURS
     Route: 048
     Dates: start: 20110703

REACTIONS (3)
  - SYNCOPE [None]
  - PANCYTOPENIA [None]
  - ORTHOSTATIC HYPOTENSION [None]
